FAERS Safety Report 9969766 (Version 1)
Quarter: 2014Q1

REPORT INFORMATION
  Report Type: Spontaneous
  Country: DE (occurrence: None)
  Receive Date: 20140304
  Receipt Date: 20140304
  Transmission Date: 20141002
  Serious: Yes (Other)
  Sender: FDA-Public Use
  Company Number: KAD201306-000742

PATIENT
  Age: 58 Year
  Sex: Male
  Weight: 66 kg

DRUGS (9)
  1. RIBAVIRIN(RIBAVIRIN) [Suspect]
     Indication: HEPATITIS C
     Dosage: 1000 MG/DAY (AT BASELINE, WEEK 4 AND 8)
  2. RIBAVIRIN(RIBAVIRIN) [Suspect]
     Indication: HEPATITIS CHOLESTATIC
     Dosage: 1000 MG/DAY (AT BASELINE, WEEK 4 AND 8)
  3. INTERFERON ALFACON-L [Suspect]
     Indication: HEPATITIS C
  4. PEGINTERFERON ALFA-2A (PEGINTERFERON ALFA-2A) [Suspect]
     Indication: HEPATITIS C
  5. PEGINTERFERON ALFA-2A (PEGINTERFERON ALFA-2A) [Suspect]
     Indication: HEPATITIS CHOLESTATIC
  6. TELAPREVIR (TELAPREVIR) [Suspect]
     Indication: HEPATITIS C
  7. TELAPREVIR (TELAPREVIR) [Suspect]
     Indication: HEPATITIS CHOLESTATIC
  8. CYCLOSPORINE A [Suspect]
  9. STEROID [Suspect]
     Indication: IMMUNOSUPPRESSION

REACTIONS (6)
  - Drug interaction [None]
  - Anaemia [None]
  - Leukopenia [None]
  - Treatment failure [None]
  - Pneumonia bacterial [None]
  - Haematotoxicity [None]
